FAERS Safety Report 5088131-7 (Version None)
Quarter: 2006Q3

REPORT INFORMATION
  Report Type: 
  Country: None (occurrence: None)
  Receive Date: 20060727
  Receipt Date: 20060531
  Transmission Date: 20061208
  Serious: Yes (Other)
  Sender: FDA-Public Use
  Company Number: 2006025137

PATIENT
  Age: 67 Year
  Sex: Female

DRUGS (8)
  1. LYRICA [Suspect]
     Indication: FIBROMYALGIA
     Dosage: 100 MG
     Route: 065
     Dates: start: 20060105, end: 20060101
  2. AMBIEN [Concomitant]
  3. NEXIUM [Concomitant]
  4. FLEXERIL [Concomitant]
  5. EFFEXOR XR [Concomitant]
  6. NEURONTIN [Concomitant]
  7. RHINOCORT [Concomitant]
  8. OXYCODONE HCL [Concomitant]

REACTIONS (3)
  - DISORIENTATION [None]
  - PAIN [None]
  - UNEVALUABLE EVENT [None]
